FAERS Safety Report 4764437-3 (Version None)
Quarter: 2005Q3

REPORT INFORMATION
  Report Type: 
  Country: None (occurrence: None)
  Receive Date: 20050906
  Receipt Date: 20050823
  Transmission Date: 20060218
  Serious: Yes (Hospitalization, Other)
  Sender: FDA-Public Use
  Company Number: 2005118603

PATIENT
  Age: 73 Year
  Sex: Female

DRUGS (3)
  1. PREDNISONE TAB [Suspect]
     Indication: ILL-DEFINED DISORDER
  2. METHOTREXATE [Suspect]
     Indication: ILL-DEFINED DISORDER
  3. ETANERCEPT (ETANERCEPT) [Suspect]
     Indication: RHEUMATOID ARTHRITIS
     Dosage: 50 MG (50 MG, 1 IN 1 WK), SUBCUTANEOUS
     Route: 058
     Dates: start: 20030124

REACTIONS (6)
  - BUNION [None]
  - EXOSTOSIS [None]
  - INFECTION [None]
  - NOSOCOMIAL INFECTION [None]
  - TOE DEFORMITY [None]
  - VENOUS INSUFFICIENCY [None]
